FAERS Safety Report 7457597-7 (Version None)
Quarter: 2011Q2

REPORT INFORMATION
  Report Type: 
  Country: None (occurrence: None)
  Receive Date: 20110426
  Receipt Date: 20110415
  Transmission Date: 20111010
  Serious: Yes (Hospitalization, Other)
  Sender: FDA-Public Use
  Company Number: CLOF-1000121

PATIENT
  Age: 65 Year
  Sex: Female
  Weight: 62 kg

DRUGS (18)
  1. CALCIUM (ASCORBIC ACID) [Concomitant]
  2. METOPROLOL SUCCINATE [Concomitant]
  3. CIPRO [Concomitant]
  4. DIFLUCAN [Concomitant]
  5. BACTRIM [Concomitant]
  6. ZOCOR [Concomitant]
  7. VICODIN [Concomitant]
  8. ATENOLOL [Concomitant]
  9. ASPIRIN [Concomitant]
  10. CELEXA [Concomitant]
  11. ANTIFUNGALS [Concomitant]
  12. ANTIVIRALS NOS [Concomitant]
  13. CLOLAR [Suspect]
     Indication: B-CELL LYMPHOMA
     Dosage: 4 MG/M2, QDX5, INTRAVENOUS; 3 MG/M2, QDX5, INTRAVENOUS
     Route: 042
     Dates: start: 20080211, end: 20080215
  14. CLOLAR [Suspect]
     Indication: B-CELL LYMPHOMA
     Dosage: 4 MG/M2, QDX5, INTRAVENOUS; 3 MG/M2, QDX5, INTRAVENOUS
     Route: 042
     Dates: start: 20080310, end: 20080314
  15. XANAX [Concomitant]
  16. HYDROCHLOROTHIAZIDE [Concomitant]
  17. NEULASTA [Concomitant]
  18. MOTRIN [Concomitant]

REACTIONS (13)
  - NEUTROPENIA [None]
  - THERAPEUTIC RESPONSE DECREASED [None]
  - ANAEMIA [None]
  - GALLBLADDER DISORDER [None]
  - WHITE BLOOD CELL COUNT DECREASED [None]
  - BODY TEMPERATURE INCREASED [None]
  - HAEMATOTOXICITY [None]
  - CHILLS [None]
  - RENAL TUBULAR NECROSIS [None]
  - BLOOD CULTURE POSITIVE [None]
  - TUBULOINTERSTITIAL NEPHRITIS [None]
  - ENTEROCOCCAL INFECTION [None]
  - THROMBOCYTOPENIA [None]
